FAERS Safety Report 9238046 (Version 1)
Quarter: 2013Q2

REPORT INFORMATION
  Report Type: Report from Study
  Country: US (occurrence: US)
  Receive Date: 20130418
  Receipt Date: 20130418
  Transmission Date: 20140414
  Serious: Yes (Death, Hospitalization)
  Sender: FDA-Public Use
  Company Number: US-TEVA-398615USA

PATIENT
  Age: 77 Year
  Sex: Male
  Weight: 95 kg

DRUGS (2)
  1. DAUNORUBICIN [Suspect]
     Indication: CHEMOTHERAPY
     Dates: start: 20120422
  2. CYTARABINE [Suspect]
     Indication: CHEMOTHERAPY
     Dates: start: 20120426

REACTIONS (1)
  - Lung infection [Fatal]
